FAERS Safety Report 9255430 (Version 1)
Quarter: 2013Q2

REPORT INFORMATION
  Report Type: Spontaneous
  Country: US (occurrence: None)
  Receive Date: 20130423
  Receipt Date: 20130423
  Transmission Date: 20140414
  Serious: Yes (Death, Hospitalization)
  Sender: FDA-Public Use
  Company Number: 2013-127

PATIENT
  Age: 61 Year
  Sex: Male

DRUGS (1)
  1. FAZACLO (CLOZAPINE, USP) ODT (ORAL DISINTEGRATING TABLET) [Suspect]
     Route: 048

REACTIONS (3)
  - Upper respiratory tract infection [None]
  - Myocardial infarction [None]
  - Nasal congestion [None]
